FAERS Safety Report 9032109 (Version 1)
Quarter: 2013Q1

REPORT INFORMATION
  Report Type: Spontaneous
  Country: US (occurrence: US)
  Receive Date: 20130122
  Receipt Date: 20130122
  Transmission Date: 20140127
  Serious: Yes (Hospitalization, Other)
  Sender: FDA-Public Use
  Company Number: US-BAYER-2013-006828

PATIENT
  Age: 44 Year
  Sex: Female

DRUGS (6)
  1. YAZ [Suspect]
     Indication: DYSFUNCTIONAL UTERINE BLEEDING
  2. YAZ [Suspect]
     Indication: UTERINE LEIOMYOMA
  3. YAZ [Suspect]
     Indication: VAGINAL HAEMORRHAGE
  4. SINGULAIR [Concomitant]
  5. CLOTRIMAZOLE W/BETAMETHASONE DIPROPIONAT [Concomitant]
  6. LOPRESSOR [Concomitant]
     Indication: HYPERTENSION

REACTIONS (3)
  - Pulmonary embolism [None]
  - Deep vein thrombosis [Recovered/Resolved]
  - Cholelithiasis [None]
